FAERS Safety Report 7201103-9 (Version None)
Quarter: 2010Q4

REPORT INFORMATION
  Report Type: 
  Country: None (occurrence: None)
  Receive Date: 20101229
  Receipt Date: 20101221
  Transmission Date: 20110411
  Serious: No
  Sender: FDA-Public Use
  Company Number: US-BIOGENIDEC-2010BI044552

PATIENT
  Sex: Female

DRUGS (6)
  1. TYSABRI [Suspect]
     Indication: MULTIPLE SCLEROSIS
     Route: 042
     Dates: start: 20080530
  2. BENACAR [Concomitant]
     Indication: CARDIAC MURMUR
     Route: 048
  3. ISOSORBIDE DINITRATE [Concomitant]
     Indication: CARDIAC MURMUR
     Route: 048
  4. TOPIRAMATE [Concomitant]
     Indication: HYPERTENSION
     Route: 048
  5. METOPROLOL TARTRATE [Concomitant]
     Indication: HYPERTENSION
  6. HYDROCHLOROTHIAZIDE [Concomitant]
     Indication: HYPERTENSION

REACTIONS (3)
  - COAGULOPATHY [None]
  - HYPOAESTHESIA [None]
  - NASOPHARYNGITIS [None]
